FAERS Safety Report 16103361 (Version 2)
Quarter: 2019Q1

REPORT INFORMATION
  Report Type: Spontaneous
  Country: DE (occurrence: DE)
  Receive Date: 20190322
  Receipt Date: 20190322
  Transmission Date: 20190418
  Serious: Yes (Other)
  Sender: FDA-Public Use
  Company Number: DE-AUROBINDO-AUR-APL-2019-014366

PATIENT

DRUGS (3)
  1. OPIPRAMOL-NEURAXPHARM [Suspect]
     Active Substance: OPIPRAMOL
     Indication: DEPRESSION
     Dosage: 100 MILLIGRAM, ONCE A DAY (4 WEEKS AGO)
     Route: 048
  2. CITALOPRAM [Suspect]
     Active Substance: CITALOPRAM HYDROBROMIDE
     Indication: DEPRESSION
     Dosage: 20 MILLIGRAM, ONCE A DAY (IN THE LAST 6 MONTHS)
     Route: 048
  3. CITALOPRAM [Suspect]
     Active Substance: CITALOPRAM HYDROBROMIDE
     Dosage: 40 MILLIGRAM, ONCE A DAY
     Route: 048

REACTIONS (5)
  - Product use in unapproved indication [Unknown]
  - Lipoedema [Not Recovered/Not Resolved]
  - Visual impairment [Unknown]
  - Dizziness [Unknown]
  - Oedema peripheral [Not Recovered/Not Resolved]
